FAERS Safety Report 20562946 (Version 5)
Quarter: 2022Q2

REPORT INFORMATION
  Report Type: Report from Study
  Country: US (occurrence: US)
  Receive Date: 20220307
  Receipt Date: 20220511
  Transmission Date: 20220720
  Serious: No
  Sender: FDA-Public Use
  Company Number: US-NOVARTISTESTPH-NVSC2022US052366

PATIENT
  Age: 58 Year
  Sex: Female

DRUGS (1)
  1. ENTRESTO [Suspect]
     Active Substance: SACUBITRIL\VALSARTAN
     Indication: Product used for unknown indication
     Dosage: 24.26 MG, BID
     Route: 048
     Dates: start: 202202

REACTIONS (6)
  - Chest pain [Not Recovered/Not Resolved]
  - Pain in extremity [Recovering/Resolving]
  - Anxiety [Not Recovered/Not Resolved]
  - Hypersensitivity [Unknown]
  - Rhinorrhoea [Unknown]
  - Nasopharyngitis [Unknown]

NARRATIVE: CASE EVENT DATE: 20220201
